FAERS Safety Report 6212995-4 (Version None)
Quarter: 2009Q2

REPORT INFORMATION
  Report Type: 
  Country: None (occurrence: None)
  Receive Date: 20090603
  Receipt Date: 20090525
  Transmission Date: 20091009
  Serious: Yes (Life-Threatening, Hospitalization)
  Sender: FDA-Public Use
  Company Number: -BAXTER-2009BH008061

PATIENT
  Age: 64 Year
  Sex: Female

DRUGS (8)
  1. HOLOXAN BAXTER [Suspect]
     Indication: SARCOMA
     Route: 042
     Dates: start: 20090408, end: 20090408
  2. HOLOXAN BAXTER [Suspect]
     Route: 042
     Dates: start: 20070712, end: 20070823
  3. HOLOXAN BAXTER [Suspect]
     Route: 042
     Dates: start: 20090507, end: 20090509
  4. UROMITEXAN BAXTER [Suspect]
     Indication: SARCOMA
     Dates: start: 20090408
  5. CISPLATIN [Suspect]
     Indication: SARCOMA
     Route: 042
     Dates: start: 20070712, end: 20070823
  6. CISPLATIN [Suspect]
     Route: 042
     Dates: start: 20090408
  7. DOXORUBICIN HCL [Suspect]
     Indication: SARCOMA
     Route: 042
     Dates: start: 20090408
  8. CARDIOXANE [Suspect]
     Indication: SARCOMA
     Route: 042
     Dates: start: 20090408

REACTIONS (5)
  - ENCEPHALOPATHY [None]
  - FANCONI SYNDROME [None]
  - HALLUCINATION [None]
  - HYPOKALAEMIA [None]
  - RENAL TUBULAR DISORDER [None]
